FAERS Safety Report 16159667 (Version 1)
Quarter: 2019Q2

REPORT INFORMATION
  Report Type: Spontaneous
  Country: NL (occurrence: NL)
  Receive Date: 20190404
  Receipt Date: 20190404
  Transmission Date: 20190711
  Serious: Yes (Other)
  Sender: FDA-Public Use
  Company Number: NL-JNJFOC-20190337286

PATIENT
  Age: 74 Year
  Sex: Male
  Weight: 105 kg

DRUGS (7)
  1. GLICLAZIDE [Concomitant]
     Active Substance: GLICLAZIDE
     Dosage: 2DD 30MG
     Route: 065
     Dates: start: 2008
  2. ALFUZOSINE [Concomitant]
     Active Substance: ALFUZOSIN HYDROCHLORIDE
     Dosage: 1DD 10MG
     Route: 065
     Dates: start: 2007
  3. FLECAINIDE ACETATE. [Concomitant]
     Active Substance: FLECAINIDE ACETATE
     Dosage: 1DD 100MG
     Route: 065
     Dates: start: 201809
  4. LOSARTANKALIUM [Concomitant]
     Active Substance: LOSARTAN
     Dosage: 1DD 12.5MG
     Route: 065
     Dates: start: 2005
  5. IMBRUVICA [Suspect]
     Active Substance: IBRUTINIB
     Indication: CHRONIC LYMPHOCYTIC LEUKAEMIA
     Dosage: 3 X PER DAY (140MG / 8 HOURS)
     Route: 048
     Dates: start: 20170910
  6. IMBRUVICA [Suspect]
     Active Substance: IBRUTINIB
     Indication: NON-HODGKIN^S LYMPHOMA
     Dosage: 3 X PER DAY (140MG / 8 HOURS)
     Route: 048
     Dates: start: 20170910
  7. PRAVASTATIN SODIUM. [Concomitant]
     Active Substance: PRAVASTATIN SODIUM
     Dosage: 1DD 40MG
     Route: 065
     Dates: start: 2007

REACTIONS (4)
  - Rash pustular [Not Recovered/Not Resolved]
  - Off label use [Unknown]
  - Haemorrhage subcutaneous [Not Recovered/Not Resolved]
  - Inappropriate schedule of product administration [Unknown]

NARRATIVE: CASE EVENT DATE: 20170910
